FAERS Safety Report 8830775 (Version 1)
Quarter: 2012Q4

REPORT INFORMATION
  Report Type: 
  Country: BR (occurrence: BR)
  Receive Date: 20121009
  Receipt Date: 20121009
  Transmission Date: 20130627
  Serious: Yes (Hospitalization, Other)
  Sender: FDA-Public Use
  Company Number: BR-009507513-1210BRA003252

PATIENT
  Sex: Male
  Weight: 105 kg

DRUGS (2)
  1. ZETSIM [Suspect]
     Dosage: 10/20 mg, qd
     Route: 048
     Dates: start: 2007
  2. ALLOPURINOL [Concomitant]
     Indication: NEPHROLITHIASIS
     Dosage: UNK, tiw
     Dates: start: 2008

REACTIONS (1)
  - Renal neoplasm [Recovered/Resolved]
